FAERS Safety Report 4429769-7 (Version None)
Quarter: 2004Q3

REPORT INFORMATION
  Report Type: 
  Country: None (occurrence: None)
  Receive Date: 20040817
  Receipt Date: 20040810
  Transmission Date: 20050211
  Serious: Yes (Hospitalization, Other)
  Sender: FDA-Public Use
  Company Number: 2004-0074-EUR

PATIENT
  Age: 81 Year
  Sex: Female
  Weight: 54.4316 kg

DRUGS (3)
  1. POLOCAINE W/ LEVONORDEFRIN [Suspect]
     Indication: TOOTH EXTRACTION
     Dosage: (1 DOSAGE FORMS, ONCE), INJECTION
     Dates: start: 20040722
  2. LABADOL (LABETALOL) [Concomitant]
  3. SULTAN TOPEX (20%) (BENZOCAINE) [Concomitant]

REACTIONS (7)
  - BLOOD PRESSURE INCREASED [None]
  - BRAIN DAMAGE [None]
  - FEELING ABNORMAL [None]
  - HEADACHE [None]
  - NAUSEA [None]
  - PHARMACEUTICAL PRODUCT COMPLAINT [None]
  - RESPIRATORY RATE INCREASED [None]
